FAERS Safety Report 8160237-5 (Version None)
Quarter: 2012Q1

REPORT INFORMATION
  Report Type: 
  Country: None (occurrence: None)
  Receive Date: 20120223
  Receipt Date: 20120220
  Transmission Date: 20120608
  Serious: Yes (Hospitalization)
  Sender: FDA-Public Use
  Company Number: FR-PFIZER INC-2012014856

PATIENT
  Age: 38 Year
  Sex: Female

DRUGS (2)
  1. CYCLEANE [Concomitant]
     Dosage: 20 A?G PER DAY
     Route: 048
     Dates: start: 20110911
  2. EFFEXOR XR [Suspect]
     Dosage: 75 MG/DAY
     Route: 048
     Dates: start: 20110908, end: 20110912

REACTIONS (2)
  - CONVERSION DISORDER [None]
  - MALAISE [None]
